FAERS Safety Report 13110640 (Version 1)
Quarter: 2017Q1

REPORT INFORMATION
  Report Type: Spontaneous
  Country: JP (occurrence: JP)
  Receive Date: 20170112
  Receipt Date: 20170112
  Transmission Date: 20170428
  Serious: Yes (Hospitalization)
  Sender: FDA-Public Use
  Company Number: JP-SA-2017SA004811

PATIENT
  Age: 76 Year
  Sex: Female

DRUGS (17)
  1. IRBETAN [Suspect]
     Active Substance: IRBESARTAN
     Route: 048
     Dates: start: 20160627
  2. MYSLEE [Concomitant]
     Active Substance: ZOLPIDEM TARTRATE
  3. DERMOVATE [Concomitant]
     Active Substance: CLOBETASOL
  4. PREDONINE [Suspect]
     Active Substance: PREDNISOLONE
     Indication: SKIN DISORDER
     Route: 048
     Dates: start: 201605
  5. FEBURIC [Concomitant]
     Active Substance: FEBUXOSTAT
     Route: 048
  6. CLOPIDOGREL BISULFATE. [Suspect]
     Active Substance: CLOPIDOGREL BISULFATE
     Indication: ANGINA PECTORIS
     Route: 048
     Dates: start: 20160627
  7. PREDONINE [Suspect]
     Active Substance: PREDNISOLONE
     Indication: SKIN DISORDER
     Route: 048
     Dates: start: 20160627
  8. BONALON [Concomitant]
     Active Substance: ALENDRONATE SODIUM
     Route: 048
  9. IRBETAN [Suspect]
     Active Substance: IRBESARTAN
     Route: 048
  10. CLOPIDOGREL BISULFATE. [Suspect]
     Active Substance: CLOPIDOGREL BISULFATE
     Indication: ANGINA PECTORIS
     Route: 048
  11. TRESIBA [Concomitant]
     Active Substance: INSULIN DEGLUDEC
     Route: 048
  12. NOVORAPID [Concomitant]
     Active Substance: INSULIN ASPART
     Route: 058
  13. BAYASPIRIN [Suspect]
     Active Substance: ASPIRIN
     Indication: ANGINA PECTORIS
     Route: 048
  14. BAYASPIRIN [Suspect]
     Active Substance: ASPIRIN
     Indication: ANGINA PECTORIS
     Route: 048
     Dates: start: 20160627
  15. VIBRAMYCIN [Concomitant]
     Active Substance: DOXYCYCLINE
     Route: 048
  16. AZOSEMIDE [Concomitant]
     Active Substance: AZOSEMIDE
     Route: 048
  17. MUCOSTA [Concomitant]
     Active Substance: REBAMIPIDE
     Route: 048

REACTIONS (2)
  - Gastrointestinal haemorrhage [Recovering/Resolving]
  - Peptic ulcer [Recovering/Resolving]

NARRATIVE: CASE EVENT DATE: 20160624
